FAERS Safety Report 9000959 (Version 1)
Quarter: 2012Q4

REPORT INFORMATION
  Report Type: Spontaneous
  Country: JP (occurrence: None)
  Receive Date: 20121226
  Receipt Date: 20121226
  Transmission Date: 20130627
  Serious: Yes (Death, Hospitalization, Other)
  Sender: FDA-Public Use
  Company Number: DSA_61524_2012

PATIENT
  Age: 72 Year
  Sex: Male

DRUGS (10)
  1. FLUOROURACIL (FLUOROURACIL) [Suspect]
     Dosage: 500 mg/m2 daily for 5 day
     Dates: start: 200904, end: 200904
  2. FLUOROURACIL (FLUOROURACIL) [Suspect]
     Dosage: 500 mg/m2 daily for 5 days
     Dates: start: 200908, end: 200908
  3. CISPLATIN [Suspect]
     Dates: start: 200903, end: 200904
  4. CISPLATIN [Suspect]
     Dates: start: 200904, end: 200904
  5. CISPLATIN [Suspect]
     Dates: start: 200908, end: 200908
  6. DOCETAXEL [Suspect]
     Dates: start: 200904, end: 200904
  7. DOCETAXEL [Suspect]
     Dates: start: 200908, end: 200908
  8. I.V. SOLUTIONS (UNKNOWN) [Concomitant]
  9. TS-1 [Concomitant]
  10. HYPNOTICS AND SEDATIVES [Concomitant]

REACTIONS (4)
  - Hyperammonaemia [None]
  - Altered state of consciousness [None]
  - Nausea [None]
  - Neutrophil count decreased [None]
